FAERS Safety Report 18851683 (Version 2)
Quarter: 2021Q1

REPORT INFORMATION
  Report Type: Spontaneous
  Country: GB (occurrence: GB)
  Receive Date: 20210205
  Receipt Date: 20210318
  Transmission Date: 20210420
  Serious: Yes (Other)
  Sender: FDA-Public Use
  Company Number: GB-TEVA-2021-GB-1874738

PATIENT
  Age: 51 Year
  Sex: Female
  Weight: 65 kg

DRUGS (7)
  1. BETMIGA [Suspect]
     Active Substance: MIRABEGRON
     Dosage: 50 MILLIGRAM DAILY;
     Dates: start: 20200724
  2. LAXIDO [Concomitant]
     Active Substance: POLYETHYLENE GLYCOL 3350\POTASSIUM CHLORIDE\SODIUM BICARBONATE\SODIUM CHLORIDE
     Dosage: 1 DOSAGE FORMS DAILY; SACHET
     Dates: start: 20210107
  3. AMLODIPINE [Concomitant]
     Active Substance: AMLODIPINE BESYLATE
     Dosage: 1 DOSAGE FORMS DAILY;
     Dates: start: 20200706
  4. SOLIFENACIN [Suspect]
     Active Substance: SOLIFENACIN
     Dosage: 10 MILLIGRAM DAILY;
     Dates: start: 20201117
  5. BESINS HEALTHCARE UK ESTRIOL [Concomitant]
     Dosage: 1 DOSAGE FORMS DAILY; INSERTED EVERY NIGHT FOR 3 WEEKS THEN ONE P...
     Dates: start: 20210120
  6. NEDITOL [Concomitant]
     Active Substance: TOLTERODINE
     Dosage: 1 DOSAGE FORMS DAILY;
     Dates: start: 20200327, end: 20201117
  7. OMEPRAZOLE. [Concomitant]
     Active Substance: OMEPRAZOLE
     Dosage: 1 DOSAGE FORMS DAILY;
     Dates: start: 20200817

REACTIONS (1)
  - Rash pruritic [Recovered/Resolved]

NARRATIVE: CASE EVENT DATE: 20210120
